FAERS Safety Report 5630959-6 (Version None)
Quarter: 2008Q1

REPORT INFORMATION
  Report Type: 
  Country: None (occurrence: None)
  Receive Date: 20080219
  Receipt Date: 20080207
  Transmission Date: 20080703
  Serious: Yes (Other)
  Sender: FDA-Public Use
  Company Number: CA-SANOFI-SYNTHELABO-A01200801385

PATIENT
  Age: 73 Year
  Sex: Female

DRUGS (7)
  1. NOVOGESIC [Concomitant]
     Indication: PAIN
     Route: 065
  2. NORVASC [Concomitant]
     Indication: HYPERTENSION
     Route: 065
  3. ATENOLOL [Concomitant]
     Indication: HYPERTENSION
     Route: 065
  4. ATENOLOL [Concomitant]
     Indication: PALPITATIONS
     Route: 065
  5. PANTOPRAZOLE SODIUM [Concomitant]
     Indication: PROPHYLAXIS
     Route: 065
     Dates: start: 20051201
  6. ATACAND [Concomitant]
     Indication: HYPERTENSION
     Route: 065
     Dates: start: 20050101
  7. PLAVIX [Suspect]
     Indication: CEREBROVASCULAR ACCIDENT PROPHYLAXIS
     Route: 048
     Dates: start: 20070201

REACTIONS (3)
  - EYE HAEMORRHAGE [None]
  - INTRAOCULAR PRESSURE INCREASED [None]
  - THROMBOSIS [None]
